FAERS Safety Report 20543413 (Version 2)
Quarter: 2025Q2

REPORT INFORMATION
  Report Type: Spontaneous
  Country: US (occurrence: US)
  Receive Date: 20220302
  Receipt Date: 20250621
  Transmission Date: 20250717
  Serious: Yes (Death, Life-Threatening, Hospitalization, Other)
  Sender: AUROBINDO
  Company Number: US-MLMSERVICE-20220216-3378206-1

PATIENT
  Age: 70 Year
  Sex: Male

DRUGS (2)
  1. METHOTREXATE [Suspect]
     Active Substance: METHOTREXATE
     Indication: Rheumatoid arthritis
     Dosage: 15 MILLIGRAM, EVERY WEEK
     Route: 048
  2. DICLOFENAC [Concomitant]
     Active Substance: DICLOFENAC
     Indication: Rheumatoid arthritis
     Route: 065

REACTIONS (5)
  - Pneumonia aspiration [Fatal]
  - Abdominal lymphadenopathy [Not Recovered/Not Resolved]
  - Hilar lymphadenopathy [Not Recovered/Not Resolved]
  - Leukoencephalopathy [Not Recovered/Not Resolved]
  - Urinary incontinence [Not Recovered/Not Resolved]
